FAERS Safety Report 24700132 (Version 1)
Quarter: 2024Q4

REPORT INFORMATION
  Report Type: Spontaneous
  Country: ES (occurrence: ES)
  Receive Date: 20241205
  Receipt Date: 20241205
  Transmission Date: 20250114
  Serious: Yes (Life-Threatening, Other)
  Sender: RANBAXY
  Company Number: None

PATIENT
  Age: 11 Year
  Sex: Male

DRUGS (3)
  1. CYCLOSPORINE [Suspect]
     Active Substance: CYCLOSPORINE
     Indication: Renal transplant
     Dosage: UNK
     Route: 065
     Dates: start: 2004
  2. METHYLPREDNISOLONE [Concomitant]
     Active Substance: METHYLPREDNISOLONE
     Indication: Renal transplant
     Dosage: UNK
     Route: 065
     Dates: start: 2004
  3. MYCOPHENOLATE MOFETIL [Concomitant]
     Active Substance: MYCOPHENOLATE MOFETIL
     Indication: Renal transplant
     Dosage: UNK
     Route: 065
     Dates: start: 2004

REACTIONS (9)
  - Leukoencephalopathy [Recovered/Resolved]
  - Partial seizures [Recovered/Resolved]
  - Headache [Recovered/Resolved]
  - Eye movement disorder [Recovered/Resolved]
  - Speech disorder [Recovered/Resolved]
  - Hallucination, visual [Recovered/Resolved]
  - Hypertension [Recovered/Resolved]
  - Computerised tomogram abnormal [Recovered/Resolved]
  - Petit mal epilepsy [Recovered/Resolved]

NARRATIVE: CASE EVENT DATE: 20040101
